FAERS Safety Report 6612871-9 (Version None)
Quarter: 2010Q1

REPORT INFORMATION
  Report Type: 
  Country: None (occurrence: None)
  Receive Date: 20100303
  Receipt Date: 20100225
  Transmission Date: 20100710
  Serious: Yes (Hospitalization)
  Sender: FDA-Public Use
  Company Number: ES-MERCK-1002ESP00066

PATIENT
  Age: 65 Year
  Sex: Female

DRUGS (11)
  1. INVANZ [Suspect]
     Indication: PYELONEPHRITIS ACUTE
     Route: 042
     Dates: start: 20091015, end: 20091016
  2. OMEPRAZOLE [Concomitant]
     Route: 048
     Dates: start: 20030101
  3. VASOTEC [Concomitant]
     Indication: HYPERTENSION
     Route: 048
     Dates: start: 20030101
  4. INDOMETHACIN [Concomitant]
     Route: 048
  5. CEFTRIAXONE SODIUM [Concomitant]
     Indication: PYELONEPHRITIS ACUTE
     Route: 042
     Dates: start: 20091003, end: 20091003
  6. HYDROCHLOROTHIAZIDE [Concomitant]
     Indication: HYPERTENSION
     Route: 048
     Dates: start: 20091001
  7. AMLODIPINE BESYLATE AND ATORVASTATIN CALCIUM [Concomitant]
     Indication: HYPERTENSION
     Route: 048
     Dates: start: 20030101
  8. CEFIXIME [Concomitant]
     Indication: PYELONEPHRITIS ACUTE
     Route: 048
     Dates: start: 20091004, end: 20091006
  9. PIPERACILLIN SODIUM AND TAZOBACTAM SODIUM [Concomitant]
     Indication: PYELONEPHRITIS ACUTE
     Route: 048
     Dates: start: 20091005, end: 20091014
  10. CEFUROXIME AXETIL [Concomitant]
     Indication: PYELONEPHRITIS ACUTE
     Route: 048
     Dates: start: 20090918, end: 20090926
  11. CEFUROXIME AXETIL [Concomitant]
     Route: 048
     Dates: start: 20090926, end: 20091003

REACTIONS (1)
  - DRUG RASH WITH EOSINOPHILIA AND SYSTEMIC SYMPTOMS [None]
